FAERS Safety Report 7058271-1 (Version None)
Quarter: 2010Q4

REPORT INFORMATION
  Report Type: 
  Country: None (occurrence: None)
  Receive Date: 20101022
  Receipt Date: 20101004
  Transmission Date: 20110411
  Serious: No
  Sender: FDA-Public Use
  Company Number: US-PFIZER INC-2010126293

PATIENT
  Sex: Female

DRUGS (3)
  1. LIPITOR [Suspect]
     Indication: BLOOD CHOLESTEROL INCREASED
     Dosage: 80 MG, 1X/DAY
     Route: 048
     Dates: start: 20060515
  2. LORAZEPAM [Concomitant]
     Dosage: UNK
  3. AMLODIPINE BESYLATE AND BENAZEPRIL HCL [Concomitant]
     Dosage: UNK

REACTIONS (1)
  - PRODUCT TASTE ABNORMAL [None]
